FAERS Safety Report 20823002 (Version 2)
Quarter: 2022Q2

REPORT INFORMATION
  Report Type: Report from Study
  Country: BR (occurrence: BR)
  Receive Date: 20220512
  Receipt Date: 20220601
  Transmission Date: 20220721
  Serious: Yes (Other)
  Sender: FDA-Public Use
  Company Number: BR-JNJFOC-20220516722

PATIENT
  Age: 45 Year
  Sex: Female
  Weight: 80 kg

DRUGS (1)
  1. INFLIXIMAB [Suspect]
     Active Substance: INFLIXIMAB
     Indication: Crohn^s disease
     Route: 042
     Dates: start: 20160816

REACTIONS (6)
  - Optic neuritis [Unknown]
  - Colectomy total [Unknown]
  - Crohn^s disease [Unknown]
  - Arthritis [Unknown]
  - Furuncle [Unknown]
  - Drug ineffective [Unknown]
